FAERS Safety Report 6212266-6 (Version None)
Quarter: 2009Q2

REPORT INFORMATION
  Report Type: 
  Country: None (occurrence: None)
  Receive Date: 20090529
  Receipt Date: 20090513
  Transmission Date: 20091009
  Serious: Yes (Hospitalization)
  Sender: FDA-Public Use
  Company Number: ADE#  09-218DPR

PATIENT
  Age: 66 Year
  Sex: Male

DRUGS (5)
  1. DIGOXIN TABLETS, USP, STRENGTH UNKNOWN [Suspect]
     Indication: CARDIAC ASSISTANCE DEVICE USER
     Dates: start: 20070601, end: 20090101
  2. OXYCODONE [Concomitant]
  3. LEXAPRO [Concomitant]
  4. VALIUM [Concomitant]
  5. AXID [Concomitant]

REACTIONS (2)
  - BLOOD PRESSURE DECREASED [None]
  - EJECTION FRACTION DECREASED [None]
